FAERS Safety Report 20810292 (Version 1)
Quarter: 2022Q2

REPORT INFORMATION
  Report Type: Spontaneous
  Country: US (occurrence: US)
  Receive Date: 20220510
  Receipt Date: 20220510
  Transmission Date: 20220720
  Serious: No
  Sender: FDA-Public Use
  Company Number: US-BRISTOL-MYERS SQUIBB COMPANY-2022-036767

PATIENT
  Age: 60 Year
  Sex: Female

DRUGS (1)
  1. REVLIMID [Suspect]
     Active Substance: LENALIDOMIDE
     Indication: Follicular lymphoma
     Dosage: TAKE 1 CAPSULE BY?MOUTH EVERY DAY?FOR 21 DAYS ON?THEN 7 DAYS OFF.
     Route: 048

REACTIONS (2)
  - Hepatic steatosis [Recovered/Resolved]
  - Intentional product use issue [Unknown]
